FAERS Safety Report 8772502 (Version 3)
Quarter: 2012Q4

REPORT INFORMATION
  Report Type: 
  Country: DK (occurrence: AU)
  Receive Date: 20120905
  Receipt Date: 20121008
  Transmission Date: 20130627
  Serious: Yes (Other)
  Sender: FDA-Public Use
  Company Number: AU-FRI-1000038315

PATIENT
  Age: 0 Year
  Sex: Female
  Weight: 2.3 kg

DRUGS (4)
  1. LEXAPRO [Suspect]
     Route: 064
  2. ARIPIPRAZOLE [Suspect]
     Dosage: 10 mg
     Route: 064
  3. BREAST FEEDING SUPPORT [Concomitant]
     Route: 048
  4. FEFOL [Concomitant]
     Route: 064

REACTIONS (3)
  - Neonatal respiratory distress syndrome [Recovered/Resolved]
  - Drug withdrawal syndrome [Recovered/Resolved]
  - Foetal exposure during pregnancy [Recovered/Resolved]
